FAERS Safety Report 23089990 (Version 2)
Quarter: 2023Q4

REPORT INFORMATION
  Report Type: Report from Study
  Country: TW (occurrence: TW)
  Receive Date: 20231020
  Receipt Date: 20231113
  Transmission Date: 20240110
  Serious: Yes (Hospitalization)
  Sender: FDA-Public Use
  Company Number: TW-KOREA IPSEN Pharma-2023-23693

PATIENT

DRUGS (7)
  1. CABOZANTINIB [Suspect]
     Active Substance: CABOZANTINIB
     Indication: Gastroenteropancreatic neuroendocrine tumour disease
     Dosage: 60 MG, QD
     Route: 048
     Dates: start: 20230905, end: 20230906
  2. LANREOTIDE ACETATE [Suspect]
     Active Substance: LANREOTIDE ACETATE
     Indication: Gastroenteropancreatic neuroendocrine tumour disease
     Dosage: 120 MG PER CYCLE
     Route: 058
     Dates: start: 20230613
  3. LANREOTIDE ACETATE [Suspect]
     Active Substance: LANREOTIDE ACETATE
     Dosage: 120 MG PER CYCLE
     Route: 058
     Dates: start: 20231003
  4. ACETAMINOPHEN [Concomitant]
     Active Substance: ACETAMINOPHEN
     Indication: Wound complication
     Dosage: 500 MG/ TAB QID PRN
     Route: 048
     Dates: start: 20231009
  5. AMLODIPINE BESYLATE [Concomitant]
     Active Substance: AMLODIPINE BESYLATE
     Indication: Hypertension
     Dosage: 5 MG, QD
     Route: 048
     Dates: start: 20220408
  6. OXETHAZAINE [Concomitant]
     Active Substance: OXETHAZAINE
     Dosage: 1 TAB TIDAC
     Route: 048
     Dates: start: 20221205
  7. FAMOTIDINE [Concomitant]
     Active Substance: FAMOTIDINE
     Dosage: 160 MG
     Route: 048
     Dates: start: 20230514

REACTIONS (1)
  - Fistula discharge [Recovering/Resolving]

NARRATIVE: CASE EVENT DATE: 20231009
